FAERS Safety Report 4553814-1 (Version None)
Quarter: 2004Q4

REPORT INFORMATION
  Report Type: 
  Country: None (occurrence: None)
  Receive Date: 20041227
  Receipt Date: 20041029
  Transmission Date: 20050328
  Serious: No
  Sender: FDA-Public Use
  Company Number: 04P-163-0279387-00

PATIENT
  Sex: Female

DRUGS (7)
  1. HUMIRA [Suspect]
     Indication: RHEUMATOID ARTHRITIS
     Dosage: 40 MG, 1 IN 1 WK, SUBCUTANEOUS
     Route: 058
     Dates: start: 20040101
  2. CETIRIZINE HCL [Concomitant]
  3. DYAZIDE [Concomitant]
  4. ADVAIR DISKUS 100/50 [Concomitant]
  5. POTASSIUM [Concomitant]
  6. ULTRAM [Concomitant]
  7. ACETAMINOPHEN [Concomitant]

REACTIONS (3)
  - INJECTION SITE PAIN [None]
  - INJECTION SITE SWELLING [None]
  - INJECTION SITE URTICARIA [None]
